FAERS Safety Report 5251775-3 (Version None)
Quarter: 2007Q1

REPORT INFORMATION
  Report Type: 
  Country: None (occurrence: None)
  Receive Date: 20070228
  Receipt Date: 20070223
  Transmission Date: 20070707
  Serious: Yes (Life-Threatening, Hospitalization)
  Sender: FDA-Public Use
  Company Number: US-SHR-US-2007-006613

PATIENT
  Age: 53 Year
  Sex: Male
  Weight: 94 kg

DRUGS (1)
  1. ULTRAVIST 300 [Suspect]
     Indication: COMPUTERISED TOMOGRAM ABDOMEN
     Dosage: 120 ML, 1 DOSE
     Route: 042
     Dates: start: 20070213, end: 20070213

REACTIONS (5)
  - LARYNGEAL OEDEMA [None]
  - PULSE ABSENT [None]
  - RESPIRATORY ARREST [None]
  - URTICARIA [None]
  - VENTRICULAR FIBRILLATION [None]
